FAERS Safety Report 23246554 (Version 1)
Quarter: 2023Q4

REPORT INFORMATION
  Report Type: Spontaneous
  Country: US (occurrence: None)
  Receive Date: 20231128
  Receipt Date: 20231128
  Transmission Date: 20240110
  Serious: No
  Sender: FDA-Public Use
  Company Number: None

PATIENT
  Age: 56 Year
  Sex: Female
  Weight: 65.32 kg

DRUGS (1)
  1. ACTEMRA [Suspect]
     Active Substance: TOCILIZUMAB
     Indication: Rheumatoid arthritis
     Dosage: INFUSE 520MG INTRAVENOUSLY OVER 1 HOUR EVERY 4 WEEKS AS DIRECTED  THEN EVERY 4 WEEKS A?
     Route: 042
     Dates: start: 202303

REACTIONS (1)
  - Pharyngitis [None]
